FAERS Safety Report 5420058-0 (Version None)
Quarter: 2007Q3

REPORT INFORMATION
  Report Type: 
  Country: None (occurrence: None)
  Receive Date: 20070815
  Receipt Date: 20070803
  Transmission Date: 20080115
  Serious: Yes (Other)
  Sender: FDA-Public Use
  Company Number: ENC200700119

PATIENT
  Age: 72 Year
  Sex: Male

DRUGS (5)
  1. ARGATROBAN [Suspect]
     Indication: HEPARIN-INDUCED THROMBOCYTOPENIA
     Dosage: INTRAVENOUS
     Route: 042
  2. LOPRESSOR [Concomitant]
  3. MEXILETINE HYDROCHLORIDE (MEXILETINE HYDROCHLORIDE) [Concomitant]
  4. LIDOCAINE [Concomitant]
  5. POLARAMINE [Concomitant]

REACTIONS (5)
  - CONJUNCTIVAL HAEMORRHAGE [None]
  - CONVULSION [None]
  - HAEMOPTYSIS [None]
  - HAEMORRHAGE INTRACRANIAL [None]
  - PETECHIAE [None]
